FAERS Safety Report 18457714 (Version 1)
Quarter: 2020Q4

REPORT INFORMATION
  Report Type: Report from Study
  Country: DK (occurrence: DK)
  Receive Date: 20201103
  Receipt Date: 20201103
  Transmission Date: 20210114
  Serious: Yes (Other)
  Sender: FDA-Public Use
  Company Number: DK-MYLANLABS-2020M1091694

PATIENT

DRUGS (4)
  1. DIAZOXIDE [Suspect]
     Active Substance: DIAZOXIDE
     Indication: CONGENITAL HYPERINSULINAEMIC HYPOGLYCAEMIA
     Route: 065
  2. OCTREOTIDE. [Suspect]
     Active Substance: OCTREOTIDE
     Indication: CONGENITAL HYPERINSULINAEMIC HYPOGLYCAEMIA
     Route: 065
  3. HYDROCORTISONE. [Suspect]
     Active Substance: HYDROCORTISONE
     Indication: CONGENITAL HYPERINSULINAEMIC HYPOGLYCAEMIA
     Route: 065
  4. NIFEDIPINE. [Suspect]
     Active Substance: NIFEDIPINE
     Indication: CONGENITAL HYPERINSULINAEMIC HYPOGLYCAEMIA
     Route: 065

REACTIONS (2)
  - Off label use [Unknown]
  - Drug ineffective for unapproved indication [Unknown]
